FAERS Safety Report 25168360 (Version 1)
Quarter: 2025Q2

REPORT INFORMATION
  Report Type: Spontaneous
  Country: PL (occurrence: PL)
  Receive Date: 20250407
  Receipt Date: 20250407
  Transmission Date: 20250717
  Serious: Yes (Hospitalization, Other)
  Sender: BRISTOL MYERS SQUIBB
  Company Number: PL-BRISTOL-MYERS SQUIBB COMPANY-2025-049755

PATIENT
  Age: 64 Year
  Sex: Male

DRUGS (2)
  1. NIVOLUMAB [Suspect]
     Active Substance: NIVOLUMAB
     Indication: Metastatic malignant melanoma
  2. IPILIMUMAB [Suspect]
     Active Substance: IPILIMUMAB
     Indication: Metastatic malignant melanoma

REACTIONS (10)
  - Rash papular [Unknown]
  - Myasthenia gravis [Unknown]
  - Myositis [Unknown]
  - Rhabdomyolysis [Unknown]
  - Myocarditis [Unknown]
  - Hepatitis [Unknown]
  - Adrenal insufficiency [Unknown]
  - Pneumonia chlamydial [Unknown]
  - Diabetes mellitus [Unknown]
  - Heart failure with preserved ejection fraction [Unknown]
